APPROVED DRUG PRODUCT: TACROLIMUS
Active Ingredient: TACROLIMUS
Strength: 0.1%
Dosage Form/Route: OINTMENT;TOPICAL
Application: A211688 | Product #002 | TE Code: AB
Applicant: ACCORD HEALTHCARE INC
Approved: Jan 31, 2019 | RLD: No | RS: No | Type: RX